FAERS Safety Report 9197340 (Version 1)
Quarter: 2013Q1

REPORT INFORMATION
  Report Type: Spontaneous
  Country: US (occurrence: None)
  Receive Date: 20120709
  Receipt Date: 20120709
  Transmission Date: 20140127
  Serious: No
  Sender: FDA-Public Use
  Company Number: 2012HGS-003520

PATIENT
  Age: 48 Year
  Sex: Female
  Weight: 65.77 kg

DRUGS (8)
  1. BENLYSTA [Suspect]
     Indication: SYSTEMIC LUPUS ERYTHEMATOSUS
     Dosage: 1 IN 28 D
     Route: 041
     Dates: start: 20120411, end: 20120411
  2. PLAQUENIL (HYDROXYCHLOROQUINE PHOSPHATE) (HYDROXYCHLOROQUINE PHOSPHATE) [Concomitant]
  3. LOTRONEX (ALOSETRON) (ALOSETRON) [Concomitant]
  4. PAMELOR (NORTRIPTYLINE HYDROCHLORIDE) (NORTRIPTYLINE HYDROCHLORIDE) [Concomitant]
  5. FISH OIL (FISH OIL) (FISH OIL) [Concomitant]
  6. LYSINE (LYSINE) (LYSINE) [Concomitant]
  7. VITAMIN D (ERGOCALCIFEROL) (ERGOCALCIFEROL) [Concomitant]
  8. BIOTIN (BIOTIN) (BIOTIN) [Concomitant]

REACTIONS (2)
  - Inflammatory bowel disease [None]
  - Diarrhoea [None]
